FAERS Safety Report 21736821 (Version 3)
Quarter: 2023Q1

REPORT INFORMATION
  Report Type: Other
  Country: US (occurrence: US)
  Receive Date: 20221216
  Receipt Date: 20230207
  Transmission Date: 20230418
  Serious: Yes (Hospitalization)
  Sender: FDA-Public Use
  Company Number: US-ALVOGEN-2022088804

PATIENT
  Age: 36 Year
  Sex: Female

DRUGS (3)
  1. DAPSONE [Suspect]
     Active Substance: DAPSONE
     Indication: Idiopathic urticaria
  2. PREDNISONE [Concomitant]
     Active Substance: PREDNISONE
     Indication: Product used for unknown indication
     Dosage: HIGH-DOSE
  3. OMALIZUMAB [Concomitant]
     Active Substance: OMALIZUMAB
     Indication: Idiopathic urticaria

REACTIONS (5)
  - Normocytic anaemia [Recovered/Resolved]
  - Glucose-6-phosphate dehydrogenase abnormal [Recovered/Resolved]
  - Methaemoglobinaemia [Recovered/Resolved]
  - Haemolysis [Recovered/Resolved]
  - Off label use [Unknown]
